FAERS Safety Report 6414435-9 (Version None)
Quarter: 2009Q4

REPORT INFORMATION
  Report Type: 
  Country: None (occurrence: None)
  Receive Date: 20091026
  Receipt Date: 20091013
  Transmission Date: 20100525
  Serious: Yes (Hospitalization)
  Sender: FDA-Public Use
  Company Number: PHEH2009US10975

PATIENT
  Sex: Female

DRUGS (2)
  1. EXJADE [Suspect]
     Indication: THALASSAEMIA
     Dosage: 750 MG DAILY
     Route: 048
  2. DESFERAL [Concomitant]
     Route: 042

REACTIONS (3)
  - ANXIETY [None]
  - PAIN [None]
  - PALLIATIVE CARE [None]
